FAERS Safety Report 19462376 (Version 2)
Quarter: 2021Q3

REPORT INFORMATION
  Report Type: Report from Study
  Country: US (occurrence: US)
  Receive Date: 20210625
  Receipt Date: 20210709
  Transmission Date: 20211014
  Serious: Yes (Death)
  Sender: FDA-Public Use
  Company Number: US-VERTEX PHARMACEUTICALS-2021-009573

PATIENT
  Sex: Male

DRUGS (1)
  1. TRIKAFTA [Suspect]
     Active Substance: ELEXACAFTOR\IVACAFTOR\TEZACAFTOR
     Indication: CYSTIC FIBROSIS
     Dosage: 2 ORANGE TABS(100 MG ELEXACAFTOR/ 50 MG TEZACAFTOR/ 75 MG IVACAFTOR)AM;1 BLUE TAB(150MG IVACAFTOR)PM
     Route: 048
     Dates: start: 202002, end: 20210617

REACTIONS (3)
  - Dyspnoea [Unknown]
  - Neoplasm malignant [Fatal]
  - Chest pain [Unknown]

NARRATIVE: CASE EVENT DATE: 2021
